FAERS Safety Report 7488902-3 (Version None)
Quarter: 2011Q2

REPORT INFORMATION
  Report Type: 
  Country: None (occurrence: None)
  Receive Date: 20110518
  Receipt Date: 20110414
  Transmission Date: 20111010
  Serious: Yes (Hospitalization, Other)
  Sender: FDA-Public Use
  Company Number: US-BAYER-201035740NA

PATIENT
  Age: 25 Year
  Sex: Female
  Weight: 106.12 kg

DRUGS (2)
  1. YAZ [Suspect]
     Indication: CONTRACEPTION
     Dosage: UNK
     Route: 048
     Dates: start: 20080701, end: 20100401
  2. VICODIN [Concomitant]
     Indication: PAIN
     Dosage: 5 MG, PRN
     Route: 048
     Dates: start: 20080901

REACTIONS (5)
  - ABDOMINAL PAIN UPPER [None]
  - NAUSEA [None]
  - CHOLECYSTITIS ACUTE [None]
  - GALLBLADDER DISORDER [None]
  - CHOLELITHIASIS [None]
